FAERS Safety Report 23043293 (Version 3)
Quarter: 2023Q4

REPORT INFORMATION
  Report Type: Spontaneous
  Country: EG (occurrence: EG)
  Receive Date: 20231009
  Receipt Date: 20231120
  Transmission Date: 20240109
  Serious: Yes (Hospitalization)
  Sender: FDA-Public Use
  Company Number: EG-NOVOPROD-1122158

PATIENT
  Age: 807 Month
  Sex: Female

DRUGS (2)
  1. INSULIN HUMAN [Suspect]
     Active Substance: INSULIN HUMAN
     Indication: Diabetes mellitus
     Dosage: 50 IU, QD(30 U MORNING - 20U NIGHT)
     Route: 058
  2. GLIPTUS PLUS [Concomitant]
     Indication: Diabetes mellitus
     Dosage: 50/1000 1 TAB DAILY AFTER BREAKFAST
     Route: 048

REACTIONS (3)
  - Fall [Unknown]
  - Head injury [Recovered/Resolved]
  - Hypertension [Recovered/Resolved]
